FAERS Safety Report 4742111-7 (Version None)
Quarter: 2005Q3

REPORT INFORMATION
  Report Type: 
  Country: None (occurrence: None)
  Receive Date: 20050810
  Receipt Date: 20050810
  Transmission Date: 20060218
  Serious: Yes (Hospitalization)
  Sender: FDA-Public Use
  Company Number: None

PATIENT
  Age: 81 Year
  Sex: Male
  Weight: 107.5025 kg

DRUGS (14)
  1. LISINOPRIL [Suspect]
     Indication: CARDIAC FAILURE CONGESTIVE
     Dosage: PTA
  2. INSULIN [Suspect]
     Indication: DIABETES MELLITUS
     Dosage: PTA
  3. . [Concomitant]
  4. . [Concomitant]
  5. . [Concomitant]
  6. . [Concomitant]
  7. . [Concomitant]
  8. . [Concomitant]
  9. . [Concomitant]
  10. . [Concomitant]
  11. . [Concomitant]
  12. . [Concomitant]
  13. . [Concomitant]
  14. . [Concomitant]

REACTIONS (2)
  - HYPOGLYCAEMIA [None]
  - HYPOTENSION [None]
